FAERS Safety Report 6161824-6 (Version None)
Quarter: 2009Q2

REPORT INFORMATION
  Report Type: 
  Country: None (occurrence: None)
  Receive Date: 20090421
  Receipt Date: 20090414
  Transmission Date: 20091009
  Serious: Yes (Hospitalization)
  Sender: FDA-Public Use
  Company Number: US-WYE-H08949309

PATIENT
  Age: 53 Year
  Sex: Female
  Weight: 81.9 kg

DRUGS (1)
  1. MYLOTARG [Suspect]
     Indication: ACUTE MYELOID LEUKAEMIA
     Dosage: TOTAL DOSE ADMINISTERED THIS COURSE: 9.55MG
     Route: 065
     Dates: start: 20090112, end: 20090112

REACTIONS (1)
  - DEHYDRATION [None]
